FAERS Safety Report 5581230-2 (Version None)
Quarter: 2007Q4

REPORT INFORMATION
  Report Type: 
  Country: None (occurrence: None)
  Receive Date: 20071227
  Receipt Date: 20071219
  Transmission Date: 20080405
  Serious: Yes (Hospitalization)
  Sender: FDA-Public Use
  Company Number: LTI2005A00075

PATIENT
  Age: 72 Year
  Sex: Male

DRUGS (1)
  1. ENANTONE LP 11.25 MG PREP INJ(LEUPROLIDE ACETATE)(11.25 MILLIGRAM, INJ [Suspect]
     Indication: PROSTATE CANCER
     Dosage: 11.25 MG (11.25 MG, 1 IN 3 M), INTRAMUSCULAR
     Route: 030
     Dates: start: 20020101, end: 20050120

REACTIONS (10)
  - INJECTION SITE ABSCESS [None]
  - INJECTION SITE INDURATION [None]
  - INJECTION SITE NECROSIS [None]
  - INJECTION SITE NODULE [None]
  - INJECTION SITE ULCER [None]
  - NO THERAPEUTIC RESPONSE [None]
  - PRURITUS [None]
  - SKIN TEST POSITIVE [None]
  - STAPHYLOCOCCAL ABSCESS [None]
  - TYPE IV HYPERSENSITIVITY REACTION [None]
